FAERS Safety Report 9915277 (Version 1)
Quarter: 2014Q1

REPORT INFORMATION
  Report Type: Report from Study
  Country: ZA (occurrence: ZA)
  Receive Date: 20140221
  Receipt Date: 20140221
  Transmission Date: 20141002
  Serious: Yes (Death, Other)
  Sender: FDA-Public Use
  Company Number: ZA-ROCHE-1351131

PATIENT
  Age: 33 Year
  Sex: Male

DRUGS (1)
  1. MIRCERA [Suspect]
     Indication: NEPHROGENIC ANAEMIA
     Dosage: LAST DOSE RECEIVED ON 09/FEB/2014
     Route: 058
     Dates: start: 20140116

REACTIONS (2)
  - Dyspnoea [Unknown]
  - Death [Fatal]
